FAERS Safety Report 10803103 (Version 1)
Quarter: 2015Q1

REPORT INFORMATION
  Report Type: Spontaneous
  Country: BR (occurrence: BR)
  Receive Date: 20150217
  Receipt Date: 20150217
  Transmission Date: 20150721
  Serious: Yes (Death)
  Sender: FDA-Public Use
  Company Number: BR-ALLERGAN-1502790US

PATIENT
  Age: 73 Year
  Sex: Female

DRUGS (6)
  1. LYRICA [Concomitant]
     Active Substance: PREGABALIN
     Indication: PAIN
     Dosage: UNK
     Dates: start: 2008, end: 201306
  2. ARADOIS [Concomitant]
     Active Substance: LOSARTAN POTASSIUM
  3. BOTOX [Suspect]
     Active Substance: ONABOTULINUMTOXINA
     Indication: PAIN
     Dosage: UNK UNK, SINGLE
     Dates: start: 201309, end: 201309
  4. GABAPENTIN. [Concomitant]
     Active Substance: GABAPENTIN
  5. TRAMAL [Concomitant]
     Active Substance: TRAMADOL
     Indication: PAIN
     Dosage: 50 MG, Q4HR
  6. BOTOX [Suspect]
     Active Substance: ONABOTULINUMTOXINA
     Dosage: UNK UNK, SINGLE
     Dates: start: 201306, end: 201306

REACTIONS (1)
  - Respiratory failure [Fatal]

NARRATIVE: CASE EVENT DATE: 201312
